FAERS Safety Report 6894067-9 (Version None)
Quarter: 2010Q3

REPORT INFORMATION
  Report Type: 
  Country: None (occurrence: None)
  Receive Date: 20100802
  Receipt Date: 20100720
  Transmission Date: 20110219
  Serious: No
  Sender: FDA-Public Use
  Company Number: US-JNJFOC-20100707189

PATIENT
  Sex: Female
  Weight: 57.15 kg

DRUGS (4)
  1. DURAGESIC-100 [Suspect]
     Indication: FIBROMYALGIA
     Route: 062
  2. DURAGESIC-100 [Suspect]
     Route: 062
  3. DURAGESIC-100 [Suspect]
     Indication: LYME DISEASE
     Route: 062
  4. DURAGESIC-100 [Suspect]
     Route: 062

REACTIONS (13)
  - BURSA DISORDER [None]
  - CONTUSION [None]
  - DRUG EFFECT INCREASED [None]
  - DRUG WITHDRAWAL SYNDROME [None]
  - FALL [None]
  - INADEQUATE ANALGESIA [None]
  - INAPPROPRIATE SCHEDULE OF DRUG ADMINISTRATION [None]
  - JOINT INJURY [None]
  - PAIN [None]
  - SYNCOPE [None]
  - THERAPEUTIC RESPONSE DECREASED [None]
  - WITHDRAWAL SYNDROME [None]
  - WRONG TECHNIQUE IN DRUG USAGE PROCESS [None]
